FAERS Safety Report 6837494-8 (Version None)
Quarter: 2010Q3

REPORT INFORMATION
  Report Type: 
  Country: None (occurrence: None)
  Receive Date: 20100713
  Receipt Date: 20070516
  Transmission Date: 20110219
  Serious: No
  Sender: FDA-Public Use
  Company Number: US-PFIZER INC-2007039718

PATIENT
  Sex: Male
  Weight: 86.2 kg

DRUGS (5)
  1. CHANTIX [Suspect]
     Indication: SMOKING CESSATION THERAPY
     Dates: start: 20070501, end: 20070507
  2. IBUPROFEN [Concomitant]
     Indication: BACK DISORDER
  3. TYLENOL [Concomitant]
     Indication: BACK DISORDER
  4. SALBUTAMOL [Concomitant]
  5. BUDESONIDE [Concomitant]

REACTIONS (4)
  - ABDOMINAL PAIN UPPER [None]
  - ABNORMAL DREAMS [None]
  - FLATULENCE [None]
  - NAUSEA [None]
